FAERS Safety Report 5275328-6 (Version None)
Quarter: 2007Q1

REPORT INFORMATION
  Report Type: 
  Country: None (occurrence: None)
  Receive Date: 20061213
  Receipt Date: 20050906
  Transmission Date: 20070707
  Serious: No
  Sender: FDA-Public Use
  Company Number: 2005UW13297

PATIENT
  Sex: Female

DRUGS (1)
  1. SEROQUEL [Suspect]
     Dates: start: 20020101

REACTIONS (1)
  - DIABETES MELLITUS [None]
